FAERS Safety Report 20205918 (Version 1)
Quarter: 2021Q4

REPORT INFORMATION
  Report Type: Spontaneous
  Country: US (occurrence: None)
  Receive Date: 20211217
  Receipt Date: 20211217
  Transmission Date: 20220303
  Serious: Yes (Other)
  Sender: FDA-Public Use
  Company Number: None

PATIENT
  Age: 37 Year
  Sex: Female

DRUGS (2)
  1. CASIRIVIMAB\IMDEVIMAB [Suspect]
     Active Substance: CASIRIVIMAB\IMDEVIMAB
     Indication: SARS-CoV-2 antibody test positive
     Dosage: OTHER FREQUENCY : ONCE;?
     Route: 041
     Dates: start: 20211217, end: 20211217
  2. CASIRIVIMAB\IMDEVIMAB [Concomitant]
     Active Substance: CASIRIVIMAB\IMDEVIMAB
     Dates: start: 20211217, end: 20211217

REACTIONS (4)
  - Infusion related reaction [None]
  - Heart rate increased [None]
  - Malaise [None]
  - Blood pressure increased [None]

NARRATIVE: CASE EVENT DATE: 20211217
